FAERS Safety Report 4318251-3 (Version None)
Quarter: 2004Q1

REPORT INFORMATION
  Report Type: 
  Country: None (occurrence: None)
  Receive Date: 20040317
  Receipt Date: 20040114
  Transmission Date: 20041129
  Serious: Yes (Hospitalization)
  Sender: FDA-Public Use
  Company Number: JP-BRISTOL-MYERS SQUIBB COMPANY-12482550

PATIENT
  Age: 29 Year
  Sex: Male

DRUGS (4)
  1. EFAVIRENZ [Suspect]
     Indication: HIV INFECTION
     Route: 048
     Dates: start: 20021002
  2. DOXYCYCLINE HYCLATE [Suspect]
     Indication: SYPHILIS
     Route: 048
     Dates: start: 20021026, end: 20021026
  3. DIDANOSINE [Concomitant]
     Indication: HIV INFECTION
     Dates: start: 20021002
  4. ZIDOVUDINE [Concomitant]
     Indication: HIV INFECTION
     Dates: start: 20021002

REACTIONS (10)
  - EYE PRURITUS [None]
  - FACE OEDEMA [None]
  - FEELING HOT [None]
  - INSOMNIA [None]
  - MALAISE [None]
  - OCULAR HYPERAEMIA [None]
  - PARAESTHESIA ORAL [None]
  - PNEUMONITIS [None]
  - PYREXIA [None]
  - RASH [None]
